FAERS Safety Report 9089636 (Version 1)
Quarter: 2013Q1

REPORT INFORMATION
  Report Type: Spontaneous
  Country: US (occurrence: US)
  Receive Date: 20130131
  Receipt Date: 20130131
  Transmission Date: 20140127
  Serious: No
  Sender: FDA-Public Use
  Company Number: US-ABBOTT-12P-163-1015164-00

PATIENT
  Age: 52 Year
  Sex: Female

DRUGS (9)
  1. HUMIRA [Suspect]
     Indication: CROHN^S DISEASE
     Dates: start: 201204
  2. AZATHIOPRINE [Concomitant]
     Indication: CROHN^S DISEASE
  3. LANTUS [Concomitant]
     Indication: DIABETES MELLITUS
     Dosage: 12 UNITS EVERY MORNING
     Route: 058
  4. HUMALOG [Concomitant]
     Indication: DIABETES MELLITUS
     Dosage: SLIDING SCALE AS NEEDED 3 TIMES DAILY
     Route: 058
  5. ADVAIR DISKUS [Concomitant]
     Indication: BRONCHIAL DISORDER
     Dosage: 1 PUFF TWICE DAILY
  6. OPANA ER [Concomitant]
     Indication: PAIN
  7. OPANA ER [Concomitant]
     Dates: start: 201210
  8. OXYCODONE [Concomitant]
     Indication: PAIN
     Dosage: 1 TAB EVERY 4 HRS AS NEEDED
  9. PHENERGAN [Concomitant]
     Indication: NAUSEA

REACTIONS (1)
  - Injection site pain [Recovered/Resolved]
